FAERS Safety Report 5527947-7 (Version None)
Quarter: 2007Q4

REPORT INFORMATION
  Report Type: 
  Country: None (occurrence: None)
  Receive Date: 20071126
  Receipt Date: 20071126
  Transmission Date: 20080405
  Serious: Yes (Hospitalization, Disabling, Other)
  Sender: FDA-Public Use
  Company Number: None

PATIENT
  Sex: Female
  Weight: 68.0396 kg

DRUGS (1)
  1. FOSAMAX [Suspect]
     Indication: OSTEOPOROSIS
     Dates: start: 19970201, end: 20070420

REACTIONS (4)
  - ATRIAL FIBRILLATION [None]
  - BONE PAIN [None]
  - DYSPNOEA [None]
  - HEART RATE IRREGULAR [None]
